FAERS Safety Report 12095570 (Version 1)
Quarter: 2016Q1

REPORT INFORMATION
  Report Type: Spontaneous
  Country: GB (occurrence: GB)
  Receive Date: 20160219
  Receipt Date: 20160219
  Transmission Date: 20160526
  Serious: Yes (Disabling)
  Sender: FDA-Public Use
  Company Number: GB-WATSON-2016-03140

PATIENT
  Age: 62 Year
  Sex: Female
  Weight: 52.16 kg

DRUGS (1)
  1. TRIMETHOPRIM. [Suspect]
     Active Substance: TRIMETHOPRIM
     Indication: URINARY TRACT INFECTION
     Dosage: 200 MG, TOTAL
     Route: 048

REACTIONS (14)
  - Visual impairment [Recovering/Resolving]
  - Oral mucosal blistering [Not Recovered/Not Resolved]
  - Paraesthesia [Recovering/Resolving]
  - Headache [Recovering/Resolving]
  - Myalgia [Recovered/Resolved]
  - Feeling cold [Recovering/Resolving]
  - Hallucination, visual [Not Recovered/Not Resolved]
  - Mouth ulceration [Not Recovered/Not Resolved]
  - Swollen tongue [Recovering/Resolving]
  - Mouth swelling [Recovering/Resolving]
  - Somnolence [Unknown]
  - Tongue discolouration [Recovering/Resolving]
  - Irritable bowel syndrome [Recovering/Resolving]
  - Chills [Recovering/Resolving]

NARRATIVE: CASE EVENT DATE: 20160122
